FAERS Safety Report 7092977-3 (Version None)
Quarter: 2010Q4

REPORT INFORMATION
  Report Type: 
  Country: None (occurrence: None)
  Receive Date: 20101110
  Receipt Date: 20101029
  Transmission Date: 20110411
  Serious: Yes (Hospitalization, Other)
  Sender: FDA-Public Use
  Company Number: PHHY2008SG24378

PATIENT
  Sex: Female

DRUGS (2)
  1. ACLASTA [Suspect]
     Indication: OSTEOPOROSIS
     Dosage: 5 MG
     Route: 042
     Dates: start: 20081007
  2. ULTRACET [Concomitant]
     Dosage: 325MG/37.5MG;1 DAY BEFORE ACLASTA TREATMENT

REACTIONS (41)
  - ABDOMINAL PAIN UPPER [None]
  - BLOOD ALBUMIN INCREASED [None]
  - BLOOD BICARBONATE DECREASED [None]
  - BLOOD CHLORIDE INCREASED [None]
  - BLOOD CREATININE INCREASED [None]
  - BLOOD PRESSURE INCREASED [None]
  - BLOOD UREA INCREASED [None]
  - BONE PAIN [None]
  - COLD SWEAT [None]
  - CREATININE RENAL CLEARANCE DECREASED [None]
  - DIALYSIS [None]
  - DIZZINESS [None]
  - DUODENITIS [None]
  - DYSPNOEA [None]
  - GASTRITIS [None]
  - HAEMATEMESIS [None]
  - HAEMATOCRIT DECREASED [None]
  - HAEMATOMA [None]
  - HAEMOGLOBIN DECREASED [None]
  - HYPERSENSITIVITY [None]
  - HYPOAESTHESIA [None]
  - HYPOCALCAEMIA [None]
  - IMMOBILE [None]
  - LYMPHOCYTE COUNT DECREASED [None]
  - NODULE [None]
  - PAIN [None]
  - PALLOR [None]
  - PALPITATIONS [None]
  - PCO2 DECREASED [None]
  - PO2 INCREASED [None]
  - PRURITUS [None]
  - RASH [None]
  - RED BLOOD CELL COUNT DECREASED [None]
  - RED CELL DISTRIBUTION WIDTH INCREASED [None]
  - RENAL FAILURE ACUTE [None]
  - RENAL FAILURE CHRONIC [None]
  - SERUM FERRITIN INCREASED [None]
  - SWELLING FACE [None]
  - TETANY [None]
  - URINE ALBUMIN/CREATININE RATIO INCREASED [None]
  - URINE ANALYSIS ABNORMAL [None]
